FAERS Safety Report 4279010-3 (Version None)
Quarter: 2004Q1

REPORT INFORMATION
  Report Type: 
  Country: None (occurrence: None)
  Receive Date: 20040121
  Receipt Date: 20040107
  Transmission Date: 20041129
  Serious: Yes (Other)
  Sender: FDA-Public Use
  Company Number: USA030946603

PATIENT
  Sex: Female

DRUGS (3)
  1. ZYPREXA [Suspect]
  2. VALIUM [Concomitant]
  3. DURAGESIC [Concomitant]

REACTIONS (4)
  - ACCIDENTAL OVERDOSE [None]
  - COMA [None]
  - LOSS OF CONSCIOUSNESS [None]
  - RESPIRATORY DEPRESSION [None]
